FAERS Safety Report 7834107-3 (Version None)
Quarter: 2011Q4

REPORT INFORMATION
  Report Type: 
  Country: None (occurrence: None)
  Receive Date: 20111024
  Receipt Date: 20111010
  Transmission Date: 20120403
  Serious: Yes (Other)
  Sender: FDA-Public Use
  Company Number: PHHY2011BR90719

PATIENT
  Age: 47 Year
  Sex: Male
  Weight: 88 kg

DRUGS (1)
  1. AFINITOR [Suspect]
     Dosage: 10 MG

REACTIONS (2)
  - HYPOAESTHESIA ORAL [None]
  - PETECHIAE [None]
